FAERS Safety Report 7974134-9 (Version None)
Quarter: 2011Q4

REPORT INFORMATION
  Report Type: 
  Country: None (occurrence: None)
  Receive Date: 20111213
  Receipt Date: 20111205
  Transmission Date: 20120403
  Serious: Yes (Hospitalization, Other)
  Sender: FDA-Public Use
  Company Number: US-BAYER-2010-003100

PATIENT
  Age: 38 Year
  Sex: Female
  Weight: 77 kg

DRUGS (10)
  1. CIPROFLOXACIN [Concomitant]
     Indication: INFECTION
     Dosage: 500 MG, UNK
     Dates: start: 20091027
  2. MORPHINE [Concomitant]
     Dosage: 5 MG, UNK
     Route: 042
     Dates: start: 20091031
  3. YAZ [Suspect]
     Dosage: UNK
     Dates: start: 20100201, end: 20100601
  4. MEDICOL [Concomitant]
     Dosage: UNK
     Route: 048
     Dates: start: 20091019
  5. POLYROSSIN [Concomitant]
     Indication: COUGH
     Dosage: UNK
     Dates: start: 20091027
  6. ZOFRAN [Concomitant]
     Dosage: 4 MG, UNK
     Route: 042
     Dates: start: 20091031
  7. BUPROPION HCL [Concomitant]
     Indication: DEPRESSION
     Dosage: 300 MG, UNK
     Dates: start: 20060101, end: 20110101
  8. COUGH SYRUP [Concomitant]
     Indication: COUGH
     Dosage: UNK
     Dates: start: 20091028
  9. YAZ [Suspect]
     Dosage: UNK
     Route: 048
     Dates: start: 20090618
  10. KLONOPIN [Concomitant]
     Indication: ANXIETY
     Dosage: UNK
     Dates: start: 20060101

REACTIONS (11)
  - CHOLECYSTITIS INFECTIVE [None]
  - BILIARY COLIC [None]
  - NAUSEA [None]
  - CHEST PAIN [None]
  - PAIN [None]
  - ANXIETY [None]
  - PANCREATOLITHIASIS [None]
  - DEPRESSION [None]
  - DIZZINESS [None]
  - HEPATIC ENZYME INCREASED [None]
  - CHOLELITHIASIS [None]
